FAERS Safety Report 21952874 (Version 1)
Quarter: 2023Q1

REPORT INFORMATION
  Report Type: Other
  Country: None (occurrence: JP)
  Receive Date: 20230204
  Receipt Date: 20230204
  Transmission Date: 20230417
  Serious: Yes (Other)
  Sender: FDA-Public Use
  Company Number: JP-Spectra Medical Devices, LLC-2137499

PATIENT
  Age: 31 Year
  Sex: Female

DRUGS (3)
  1. LIDOCAINE HYDROCHLORIDE ANHYDROUS [Suspect]
     Active Substance: LIDOCAINE HYDROCHLORIDE ANHYDROUS
     Indication: Epidural test dose
     Route: 008
  2. BUPIVACAINE [Concomitant]
     Active Substance: BUPIVACAINE
     Route: 065
  3. ROPIVACAINE. [Concomitant]
     Active Substance: ROPIVACAINE HYDROCHLORIDE
     Route: 008

REACTIONS (2)
  - Deafness [Recovered/Resolved]
  - Maternal exposure during delivery [Unknown]
